FAERS Safety Report 12679705 (Version 2)
Quarter: 2016Q3

REPORT INFORMATION
  Report Type: Spontaneous
  Country: CA (occurrence: CA)
  Receive Date: 20160824
  Receipt Date: 20160907
  Transmission Date: 20161109
  Serious: Yes (Other)
  Sender: FDA-Public Use
  Company Number: CA-ROCHE-1818957

PATIENT
  Age: 66 Year
  Sex: Male

DRUGS (3)
  1. METOPROLOL. [Suspect]
     Active Substance: METOPROLOL
     Indication: ATRIAL FIBRILLATION
     Dosage: 50 MG, BID
     Route: 065
     Dates: start: 2016
  2. XOLAIR [Suspect]
     Active Substance: OMALIZUMAB
     Indication: ASTHMA
     Dosage: 150 MG, EVERY 4 WEEKS
     Route: 058
     Dates: start: 20140319
  3. METOPROLOL. [Suspect]
     Active Substance: METOPROLOL
     Dosage: 37 MG, BID (DOSE DECREASE FROM 100 MG TO 75 MG)
     Route: 058

REACTIONS (4)
  - Dyspnoea [Unknown]
  - Hypopnoea [Recovering/Resolving]
  - Atrial fibrillation [Unknown]
  - Forced expiratory volume decreased [Unknown]

NARRATIVE: CASE EVENT DATE: 20160802
